FAERS Safety Report 6577055-1 (Version None)
Quarter: 2010Q1

REPORT INFORMATION
  Report Type: 
  Country: None (occurrence: None)
  Receive Date: 20100210
  Receipt Date: 20100205
  Transmission Date: 20100710
  Serious: Yes (Other)
  Sender: FDA-Public Use
  Company Number: RU-BRISTOL-MYERS SQUIBB COMPANY-14965933

PATIENT
  Age: 47 Year
  Sex: Female

DRUGS (1)
  1. FOSINOPRIL SODIUM [Suspect]
     Indication: HYPERTENSION
     Dosage: DURATION- 7 TO 8 YEARS
     Route: 048

REACTIONS (2)
  - NEPHROLITHIASIS [None]
  - RENAL CANCER [None]
